FAERS Safety Report 7486441-7 (Version None)
Quarter: 2011Q2

REPORT INFORMATION
  Report Type: 
  Country: None (occurrence: None)
  Receive Date: 20110517
  Receipt Date: 20110513
  Transmission Date: 20111010
  Serious: Yes (Hospitalization, Other)
  Sender: FDA-Public Use
  Company Number: VE-PFIZER INC-2011096884

PATIENT
  Age: 46 Year
  Sex: Female

DRUGS (2)
  1. CADUET [Suspect]
     Indication: HYPERTENSION
     Dosage: UNK
     Route: 048
  2. HUMIRA [Concomitant]
     Indication: PSORIASIS
     Dosage: 40 MG/0.8 ML
     Route: 058

REACTIONS (1)
  - BLOOD PRESSURE INCREASED [None]
